FAERS Safety Report 7978363-X (Version None)
Quarter: 2011Q4

REPORT INFORMATION
  Report Type: 
  Country: None (occurrence: None)
  Receive Date: 20111214
  Receipt Date: 20111209
  Transmission Date: 20120403
  Serious: Yes (Hospitalization)
  Sender: FDA-Public Use
  Company Number: IT-PFIZER INC-2011301874

PATIENT
  Age: 66 Year
  Sex: Male

DRUGS (4)
  1. ATORVASTATIN CALCIUM [Suspect]
     Indication: HYPERCHOLESTEROLAEMIA
     Dosage: 1 DOSAGE UNIT, DAILY
     Route: 048
     Dates: start: 20090101, end: 20111028
  2. ENALAPRIL MALEATE [Suspect]
     Indication: HYPERTENSION
     Dosage: 1 DOSAGE UNIT, DAILY
     Route: 048
     Dates: start: 20090101, end: 20111028
  3. KEPPRA [Suspect]
     Indication: EPILEPSY
     Dosage: 3 DOSAGE UNITS, DAILY
     Route: 048
     Dates: start: 20090101, end: 20111028
  4. ALLOPURINOL [Suspect]
     Indication: HYPERURICAEMIA
     Dosage: 100 MG, 1X/DAY
     Route: 048
     Dates: start: 20090101, end: 20111028

REACTIONS (3)
  - LEUKOPENIA [None]
  - BALANCE DISORDER [None]
  - THROMBOCYTOPENIA [None]
